FAERS Safety Report 9472944 (Version 2)
Quarter: 2013Q3

REPORT INFORMATION
  Report Type: Spontaneous
  Country: US (occurrence: US)
  Receive Date: 20130823
  Receipt Date: 20130823
  Transmission Date: 20140515
  Serious: No
  Sender: FDA-Public Use
  Company Number: US-BRISTOL-MYERS SQUIBB COMPANY-17253758

PATIENT
  Age: 59 Year
  Sex: Male

DRUGS (3)
  1. SPRYCEL [Suspect]
     Indication: CHRONIC MYELOID LEUKAEMIA
     Dosage: THERAPY YET TO RESTART ON 24JAN2013
     Route: 048
  2. ALLOPURINOL [Suspect]
  3. GLIPIZIDE [Suspect]

REACTIONS (2)
  - Hearing impaired [Unknown]
  - Rash [Unknown]
